FAERS Safety Report 6769172-8 (Version None)
Quarter: 2010Q2

REPORT INFORMATION
  Report Type: 
  Country: None (occurrence: None)
  Receive Date: 20100520
  Receipt Date: 20100104
  Transmission Date: 20101027
  Serious: Yes (Other)
  Sender: FDA-Public Use
  Company Number: 2008066586

PATIENT
  Age: 80 Year
  Sex: Female

DRUGS (8)
  1. PROVERA [Suspect]
     Indication: HORMONE REPLACEMENT THERAPY
     Dosage: 2.5 MG, ORAL ; 2.5 MG, ORAL
     Route: 048
     Dates: start: 19970830, end: 19970930
  2. PROVERA [Suspect]
     Indication: HORMONE REPLACEMENT THERAPY
     Dosage: 2.5 MG, ORAL ; 2.5 MG, ORAL
     Route: 048
     Dates: start: 20020828, end: 20030711
  3. PREMARIN [Suspect]
     Dosage: 0.625 MG ; 0.625 MG ; 0.3 MG ; 0.3 MG
     Dates: start: 19970830, end: 19970930
  4. PREMARIN [Suspect]
     Dosage: 0.625 MG ; 0.625 MG ; 0.3 MG ; 0.3 MG
     Dates: start: 19970830, end: 19970930
  5. PREMARIN [Suspect]
     Dosage: 0.625 MG ; 0.625 MG ; 0.3 MG ; 0.3 MG
     Dates: start: 20020828, end: 20030711
  6. PREMARIN [Suspect]
     Dosage: 0.625 MG ; 0.625 MG ; 0.3 MG ; 0.3 MG
     Dates: start: 20020828, end: 20030711
  7. PREMPRO [Suspect]
     Indication: HORMONE REPLACEMENT THERAPY
     Dosage: 06.25/2.5MG ;06.25/2.5MG ; 06.25/2.5MG ; 06.25/2.5MG
     Dates: start: 19950701, end: 19970830
  8. MEDROXYPROGESTERONE [Suspect]
     Dosage: 2.5 MG
     Dates: start: 20040404, end: 20050801

REACTIONS (1)
  - BREAST CANCER FEMALE [None]
